FAERS Safety Report 9117141 (Version 1)
Quarter: 2013Q1

REPORT INFORMATION
  Report Type: Spontaneous
  Country: US (occurrence: US)
  Receive Date: 20130225
  Receipt Date: 20130225
  Transmission Date: 20140127
  Serious: Yes (Other)
  Sender: FDA-Public Use
  Company Number: US-JNJFOC-20130209095

PATIENT
  Age: 2 Year
  Sex: Female

DRUGS (1)
  1. RISPERDAL [Suspect]
     Indication: AFFECTIVE DISORDER
     Route: 048
     Dates: start: 2012

REACTIONS (2)
  - Hallucination [Recovered/Resolved]
  - Drug dose omission [Recovered/Resolved]
